FAERS Safety Report 9266432 (Version 1)
Quarter: 2013Q2

REPORT INFORMATION
  Report Type: Spontaneous
  Country: CA (occurrence: CA)
  Receive Date: 20130502
  Receipt Date: 20130502
  Transmission Date: 20140414
  Serious: Yes (Other)
  Sender: FDA-Public Use
  Company Number: CA-AMGEN-CANSP2013029573

PATIENT
  Age: 73 Year
  Sex: Female
  Weight: 59.09 kg

DRUGS (1)
  1. PROLIA [Suspect]
     Indication: OSTEOPOROSIS POSTMENOPAUSAL
     Dosage: UNK
     Dates: start: 20121022

REACTIONS (4)
  - Abasia [Unknown]
  - Dizziness [Unknown]
  - Fall [Unknown]
  - Depressed mood [Unknown]
